FAERS Safety Report 7499060-3 (Version None)
Quarter: 2011Q2

REPORT INFORMATION
  Report Type: 
  Country: None (occurrence: None)
  Receive Date: 20110524
  Receipt Date: 20110510
  Transmission Date: 20111010
  Serious: Yes (Hospitalization, Other)
  Sender: FDA-Public Use
  Company Number: US-BAYER-201017685NA

PATIENT
  Age: 43 Year
  Sex: Female
  Weight: 54.875 kg

DRUGS (4)
  1. COLACE [Concomitant]
     Dosage: 100 MG, UNK
  2. YASMIN [Suspect]
     Indication: CONTRACEPTION
     Dosage: 1 TAB/DAY
     Route: 048
     Dates: start: 20070101, end: 20080101
  3. AMBIEN [Concomitant]
     Dosage: 10 MG, UNK
  4. DARVOCET [Concomitant]

REACTIONS (2)
  - PLEURAL EFFUSION [None]
  - PULMONARY EMBOLISM [None]
